FAERS Safety Report 12665736 (Version 1)
Quarter: 2016Q3

REPORT INFORMATION
  Report Type: Report from Study
  Country: US (occurrence: US)
  Receive Date: 20160818
  Receipt Date: 20160818
  Transmission Date: 20161109
  Serious: Yes (Hospitalization, Other)
  Sender: FDA-Public Use
  Company Number: US-ABBVIE-16K-163-1697758-00

PATIENT
  Age: 51 Year
  Sex: Male

DRUGS (3)
  1. HUMIRA [Suspect]
     Active Substance: ADALIMUMAB
     Route: 058
     Dates: start: 20150810, end: 20160401
  2. REMICADE [Concomitant]
     Active Substance: INFLIXIMAB
     Indication: COLITIS ULCERATIVE
     Dates: start: 201606
  3. HUMIRA [Suspect]
     Active Substance: ADALIMUMAB
     Indication: COLITIS ULCERATIVE
     Route: 058
     Dates: start: 201412, end: 20150727

REACTIONS (13)
  - Small intestine carcinoma [Recovering/Resolving]
  - Perianal erythema [Recovered/Resolved]
  - Anorectal cellulitis [Recovered/Resolved]
  - Abdominal pain [Recovered/Resolved]
  - Cellulitis of male external genital organ [Recovered/Resolved]
  - Anal fistula [Unknown]
  - Purulent discharge [Unknown]
  - Nausea [Recovered/Resolved]
  - Groin abscess [Recovered/Resolved]
  - Colitis ulcerative [Recovered/Resolved]
  - Gastrointestinal erosion [Recovered/Resolved]
  - Appendicitis [Recovered/Resolved]
  - Colonic fistula [Recovered/Resolved]

NARRATIVE: CASE EVENT DATE: 201503
